FAERS Safety Report 8530970-1 (Version None)
Quarter: 2012Q3

REPORT INFORMATION
  Report Type: 
  Country: None (occurrence: None)
  Receive Date: 20120723
  Receipt Date: 20120717
  Transmission Date: 20120928
  Serious: No
  Sender: FDA-Public Use
  Company Number: US-PFIZER INC-2012140497

PATIENT
  Sex: Female
  Weight: 82.54 kg

DRUGS (8)
  1. REVATIO [Suspect]
     Indication: PULMONARY HYPERTENSION
     Dosage: 10 MG, 3X/DAY
     Route: 048
     Dates: start: 20120501, end: 20120101
  2. REVATIO [Suspect]
     Dosage: 5 MG, 3X/DAY
     Dates: start: 20120101
  3. SYNTHROID [Concomitant]
     Dosage: UNK
  4. LISINOPRIL [Concomitant]
     Indication: HYPERTENSION
     Dosage: UNK
  5. REVATIO [Suspect]
     Dosage: 5 MG, 3X/DAY
     Route: 048
     Dates: start: 20120101, end: 20120101
  6. REVATIO [Suspect]
     Dosage: 10 MG, 3X/DAY
     Route: 048
     Dates: start: 20120101, end: 20120101
  7. LASIX [Concomitant]
     Dosage: UNK
  8. CARDIZEM [Concomitant]
     Dosage: UNK

REACTIONS (4)
  - SKIN LESION [None]
  - OEDEMA PERIPHERAL [None]
  - DIZZINESS [None]
  - URTICARIA [None]
